FAERS Safety Report 7448608-3 (Version None)
Quarter: 2011Q2

REPORT INFORMATION
  Report Type: 
  Country: None (occurrence: None)
  Receive Date: 20110429
  Receipt Date: 20100721
  Transmission Date: 20111010
  Serious: No
  Sender: FDA-Public Use
  Company Number: US-ASTRAZENECA-2010SE25732

PATIENT
  Age: 72 Year
  Sex: Female

DRUGS (2)
  1. NEXIUM [Suspect]
     Route: 048
  2. NEXIUM [Suspect]
     Route: 048
     Dates: start: 20100520

REACTIONS (4)
  - RESPIRATORY TRACT INFECTION [None]
  - OESOPHAGEAL DISORDER [None]
  - MALAISE [None]
  - ADVERSE EVENT [None]
